FAERS Safety Report 21141418 (Version 1)
Quarter: 2022Q3

REPORT INFORMATION
  Report Type: Spontaneous
  Country: US (occurrence: US)
  Receive Date: 20220728
  Receipt Date: 20220728
  Transmission Date: 20221027
  Serious: Yes (Other)
  Sender: FDA-Public Use
  Company Number: US-LUPIN PHARMACEUTICALS INC.-2022-09768

PATIENT
  Age: 63 Year
  Sex: Male

DRUGS (15)
  1. LEVETIRACETAM [Suspect]
     Active Substance: LEVETIRACETAM
     Indication: Partial seizures
     Dosage: 3000 MG, QD
     Route: 065
  2. LAMOTRIGINE [Suspect]
     Active Substance: LAMOTRIGINE
     Indication: Partial seizures
     Dosage: 300 MG, QD
     Route: 065
  3. VALPROIC ACID [Suspect]
     Active Substance: VALPROIC ACID
     Indication: Partial seizures
     Dosage: 2000 MG, QD
     Route: 065
  4. CLONAZEPAM [Suspect]
     Active Substance: CLONAZEPAM
     Indication: Partial seizures
     Dosage: 1 MG, QD (AT NIGHT)
     Route: 065
  5. LACOSAMIDE [Suspect]
     Active Substance: LACOSAMIDE
     Indication: Partial seizures
     Dosage: 600 MG, QD
     Route: 065
  6. LACOSAMIDE [Suspect]
     Active Substance: LACOSAMIDE
     Dosage: UNK (DOSE REDUCED)
     Route: 065
  7. TIAGABINE [Interacting]
     Active Substance: TIAGABINE
     Indication: Partial seizures
     Dosage: 48 MG
     Route: 065
  8. TIAGABINE [Interacting]
     Active Substance: TIAGABINE
     Dosage: 48 MG, QD (TITRATED )
     Route: 065
  9. TIAGABINE [Interacting]
     Active Substance: TIAGABINE
     Dosage: UNK (DECREASED BY ONLY HALF TABLET)
     Route: 065
  10. PERAMPANEL [Interacting]
     Active Substance: PERAMPANEL
     Indication: Partial seizures
     Dosage: 16 MG, QD (NIGHT)
     Route: 065
  11. PERAMPANEL [Interacting]
     Active Substance: PERAMPANEL
     Dosage: 12 MG, QD (REDUCED, PER NIGHT)
     Route: 065
  12. PERAMPANEL [Interacting]
     Active Substance: PERAMPANEL
     Dosage: 8 MG, QD (REDUCED)
     Route: 065
  13. CANNABIDIOL [Interacting]
     Active Substance: CANNABIDIOL
     Indication: Partial seizures
     Dosage: 150 MG, QD
     Route: 065
  14. EPIDIOLEX [Interacting]
     Active Substance: CANNABIDIOL
     Indication: Partial seizures
     Route: 065
  15. EPIDIOLEX [Interacting]
     Active Substance: CANNABIDIOL
     Dosage: TITRATED TO 20 MG/KG/DAY
     Route: 065

REACTIONS (1)
  - Drug ineffective [Unknown]
